FAERS Safety Report 5530979-6 (Version None)
Quarter: 2007Q4

REPORT INFORMATION
  Report Type: 
  Country: None (occurrence: None)
  Receive Date: 20071130
  Receipt Date: 20071126
  Transmission Date: 20080405
  Serious: Yes (Hospitalization)
  Sender: FDA-Public Use
  Company Number: US-PFIZER INC-2007083961

PATIENT
  Sex: Male
  Weight: 79.8 kg

DRUGS (14)
  1. SUTENT [Suspect]
     Indication: HEPATIC NEOPLASM MALIGNANT
     Route: 048
  2. ATIVAN [Concomitant]
     Indication: NAUSEA
     Route: 048
  3. COMPAZINE [Concomitant]
     Indication: NAUSEA
     Route: 048
     Dates: start: 20071002
  4. ZOFRAN [Concomitant]
     Indication: NAUSEA
     Route: 048
     Dates: start: 20071002
  5. HUMALOG [Concomitant]
     Dosage: TEXT:100 UNITS/ML
     Route: 058
     Dates: start: 20070926
  6. HYDROCHLOROTHIAZIDE [Concomitant]
     Route: 048
     Dates: start: 20070926
  7. LANTUS [Concomitant]
     Dosage: TEXT:100 UNITS/ML
     Route: 058
     Dates: start: 20070926
  8. LISINOPRIL [Concomitant]
     Route: 048
     Dates: start: 20070926
  9. METOPROLOL SUCCINATE [Concomitant]
     Route: 048
     Dates: start: 20070926
  10. PRAVACHOL [Concomitant]
     Route: 048
  11. PRILOSEC [Concomitant]
  12. SPIRONOLACTONE [Concomitant]
     Route: 048
     Dates: start: 20071003
  13. VITAMIN CAP [Concomitant]
     Dosage: TEXT:1 CAPSULE
     Route: 048
  14. ZANTAC [Concomitant]
     Route: 048

REACTIONS (4)
  - ATAXIA [None]
  - LEUKOPENIA [None]
  - NEUTROPENIA [None]
  - THROMBOCYTOPENIA [None]
